FAERS Safety Report 7680628-6 (Version None)
Quarter: 2011Q3

REPORT INFORMATION
  Report Type: 
  Country: None (occurrence: None)
  Receive Date: 20110812
  Receipt Date: 20110729
  Transmission Date: 20111222
  Serious: Yes (Hospitalization)
  Sender: FDA-Public Use
  Company Number: US-ROCHE-788365

PATIENT
  Sex: Male
  Weight: 72.6 kg

DRUGS (5)
  1. MIDODRINE HYDROCHLORIDE [Concomitant]
  2. VITAMIN TAB [Concomitant]
  3. ENSURE [Concomitant]
  4. CELLCEPT [Suspect]
     Indication: MYASTHENIA GRAVIS
     Route: 048
     Dates: start: 20060101
  5. CARBIDOPA [Concomitant]
     Indication: PARKINSON'S DISEASE

REACTIONS (3)
  - ULCER [None]
  - MALNUTRITION [None]
  - PHARYNGEAL INFLAMMATION [None]
